FAERS Safety Report 9565994 (Version 2)
Quarter: 2013Q4

REPORT INFORMATION
  Report Type: Spontaneous
  Country: CA (occurrence: US)
  Receive Date: 20130930
  Receipt Date: 20131003
  Transmission Date: 20140711
  Serious: Yes (Other)
  Sender: FDA-Public Use
  Company Number: US-PFIZER INC-2013275467

PATIENT
  Age: 26 Year
  Sex: Male

DRUGS (3)
  1. IBUPROFEN [Suspect]
     Indication: ANKYLOSING SPONDYLITIS
     Dosage: UNK
     Dates: start: 197411
  2. ASPIRIN [Concomitant]
     Dosage: UNK
  3. PROPOXYPHENE [Concomitant]
     Dosage: UNK

REACTIONS (1)
  - Renal papillary necrosis [Recovered/Resolved]
